FAERS Safety Report 21410564 (Version 1)
Quarter: 2022Q4

REPORT INFORMATION
  Report Type: Spontaneous
  Country: DE (occurrence: DE)
  Receive Date: 20221005
  Receipt Date: 20221005
  Transmission Date: 20230113
  Serious: Yes (Death)
  Sender: FDA-Public Use
  Company Number: DE-DCGMA-22199410

PATIENT
  Sex: Female

DRUGS (2)
  1. PRADAXA [Suspect]
     Active Substance: DABIGATRAN ETEXILATE MESYLATE
     Indication: Atrial fibrillation
     Dosage: 1-0-1 A DAY
     Route: 048
     Dates: end: 20220822
  2. PRAXBIND [Concomitant]
     Active Substance: IDARUCIZUMAB
     Indication: Product used for unknown indication
     Route: 042
     Dates: start: 20220825

REACTIONS (5)
  - Coagulopathy [Fatal]
  - Rebound effect [Fatal]
  - Haemorrhage [Fatal]
  - Contraindicated product administered [Fatal]
  - Product prescribing error [Fatal]

NARRATIVE: CASE EVENT DATE: 20220826
